FAERS Safety Report 8665458 (Version 3)
Quarter: 2015Q4

REPORT INFORMATION
  Report Type: Spontaneous
  Country: JP (occurrence: JP)
  Receive Date: 20120712
  Receipt Date: 20151221
  Transmission Date: 20160305
  Serious: Yes (Hospitalization, Other)
  Sender: FDA-Public Use
  Company Number: JP-009507513-1206USA02856

PATIENT
  Age: 48 Year
  Sex: Male

DRUGS (2)
  1. BONALON [Suspect]
     Active Substance: ALENDRONATE SODIUM
     Indication: OSTEOPOROSIS
     Dosage: 35 MG, QW
     Route: 048
     Dates: start: 2008, end: 2012
  2. PREDNISOLONE. [Concomitant]
     Active Substance: PREDNISOLONE
     Indication: BEHCET^S SYNDROME
     Dosage: DAILY DOSE-12.5 MG-20 MG
     Route: 048

REACTIONS (1)
  - Atypical femur fracture [Recovering/Resolving]

NARRATIVE: CASE EVENT DATE: 201202
